FAERS Safety Report 11747872 (Version 1)
Quarter: 2015Q4

REPORT INFORMATION
  Report Type: Spontaneous
  Country: US (occurrence: US)
  Receive Date: 20151117
  Receipt Date: 20151117
  Transmission Date: 20160304
  Serious: No
  Sender: FDA-Public Use
  Company Number: US-APOTEX-2014AP004806

PATIENT
  Sex: Female

DRUGS (2)
  1. MODAFINIL TABLETS USP [Suspect]
     Active Substance: MODAFINIL
     Indication: COGNITIVE DISORDER
     Dosage: 1/2 TABLET
     Route: 065
     Dates: end: 20140821
  2. MODAFINIL TABLETS USP [Suspect]
     Active Substance: MODAFINIL
     Indication: FATIGUE

REACTIONS (5)
  - Headache [Unknown]
  - Drug ineffective [Unknown]
  - Fatigue [Unknown]
  - Disturbance in attention [Unknown]
  - Incorrect dose administered [Unknown]
